FAERS Safety Report 8859014 (Version 1)
Quarter: 2012Q4

REPORT INFORMATION
  Report Type: 
  Country: KE (occurrence: KE)
  Receive Date: 20121024
  Receipt Date: 20121024
  Transmission Date: 20130627
  Serious: Yes (Hospitalization)
  Sender: FDA-Public Use
  Company Number: PHHY2012KE094639

PATIENT
  Age: 52 Year
  Sex: Female

DRUGS (4)
  1. SIMULECT [Suspect]
     Indication: RENAL TRANSPLANT
     Dosage: 20 mg, QD
     Route: 042
     Dates: start: 20121011, end: 20121015
  2. MYCOPHENOLIC ACID [Concomitant]
     Dosage: 720 mg, BID
     Dates: start: 20121011, end: 20121015
  3. TACROLIMUS [Concomitant]
     Dosage: 2 mg, BID
     Dates: start: 20121011, end: 20121015
  4. PREDNISONE [Concomitant]
     Dosage: 30 mg, QD
     Dates: start: 20121011, end: 20121015

REACTIONS (3)
  - Urine output decreased [Recovered/Resolved]
  - Blood creatinine increased [Recovered/Resolved]
  - Weight increased [Recovered/Resolved]
